FAERS Safety Report 9708205 (Version 1)
Quarter: 2013Q4

REPORT INFORMATION
  Report Type: Spontaneous
  Country: US (occurrence: US)
  Receive Date: 20131125
  Receipt Date: 20131125
  Transmission Date: 20140711
  Serious: Yes (Other)
  Sender: FDA-Public Use
  Company Number: US-TEVA-446897USA

PATIENT
  Sex: Female

DRUGS (2)
  1. METOCLOPRAMIDE [Suspect]
  2. REGLAN [Suspect]

REACTIONS (10)
  - Dysphagia [Unknown]
  - Pain [Unknown]
  - Gait disturbance [Unknown]
  - Pain in jaw [Unknown]
  - Dyskinesia [Unknown]
  - Speech disorder [Unknown]
  - Memory impairment [Unknown]
  - Dyskinesia [Unknown]
  - Headache [Unknown]
  - Tremor [Unknown]
